FAERS Safety Report 9029025 (Version 2)
Quarter: 2013Q2

REPORT INFORMATION
  Report Type: Spontaneous
  Country: US (occurrence: US)
  Receive Date: 20130122
  Receipt Date: 20130411
  Transmission Date: 20140414
  Serious: Yes (Other)
  Sender: FDA-Public Use
  Company Number: PHEH2013US001743

PATIENT
  Age: 86 Year
  Sex: Female

DRUGS (7)
  1. RECLAST [Suspect]
     Indication: BONE DENSITY DECREASED
     Dosage: 5 MG (5MG/100ML), YEARLY
     Route: 042
     Dates: start: 2012
  2. RECLAST [Suspect]
     Dosage: 5 MG (5MG/100ML), YEARLY
     Route: 042
     Dates: start: 20130114
  3. METOPROLOL [Concomitant]
     Dosage: UNK UKN, UNK
  4. AMLODIPINE [Concomitant]
     Dosage: UNK UKN, UNK
  5. CALCIUM [Concomitant]
     Dosage: UNK UKN, UNK
  6. VITAMIN D [Concomitant]
     Dosage: UNK UKN, UNK
  7. VITAMIN C [Concomitant]
     Dosage: UNK UKN, UNK

REACTIONS (8)
  - Bronchitis [Unknown]
  - Blood pressure increased [Unknown]
  - Insomnia [Recovered/Resolved]
  - Arthralgia [Unknown]
  - Pain in extremity [Recovered/Resolved]
  - Gait disturbance [Recovered/Resolved]
  - Bone pain [Unknown]
  - Muscle spasms [Recovered/Resolved]
